FAERS Safety Report 9335982 (Version 1)
Quarter: 2013Q2

REPORT INFORMATION
  Report Type: Spontaneous
  Country: FR (occurrence: FR)
  Receive Date: 20130606
  Receipt Date: 20130606
  Transmission Date: 20140414
  Serious: Yes (Hospitalization, Other)
  Sender: FDA-Public Use
  Company Number: FR-GILEAD-2005-0008715

PATIENT
  Age: 58 Year
  Sex: Male

DRUGS (10)
  1. VIREAD [Suspect]
     Indication: HIV INFECTION
     Dosage: 300 MG, QD
     Route: 048
     Dates: start: 20021216, end: 20050616
  2. VIDEX [Suspect]
     Indication: HIV INFECTION
     Dosage: 250 MG, QD
     Route: 048
     Dates: start: 200212, end: 20050616
  3. STAGID [Concomitant]
     Indication: DIABETES MELLITUS
     Route: 048
     Dates: start: 200501, end: 20050526
  4. VIRACEPT [Concomitant]
     Indication: HIV INFECTION
     Route: 048
     Dates: start: 199803
  5. OROCAL D3 [Concomitant]
     Indication: MINERAL METABOLISM DISORDER
     Route: 048
     Dates: start: 200312
  6. MOTILIUM [Concomitant]
     Indication: GASTROOESOPHAGEAL REFLUX DISEASE
     Route: 048
     Dates: start: 199811
  7. ATARAX [Concomitant]
     Indication: ANXIETY
     Route: 048
     Dates: start: 199901
  8. IMOVANE [Concomitant]
     Indication: INSOMNIA
     Route: 048
  9. VASTEN [Concomitant]
     Indication: HYPERCHOLESTEROLAEMIA
     Route: 048
     Dates: start: 200008, end: 20050526
  10. ERCEFURYL [Concomitant]
     Indication: DIVERTICULUM
     Route: 048
     Dates: start: 200107

REACTIONS (3)
  - Hyperlactacidaemia [Unknown]
  - Nephropathy toxic [Recovered/Resolved]
  - Renal tubular necrosis [Recovered/Resolved]
